FAERS Safety Report 9999145 (Version 1)
Quarter: 2014Q1

REPORT INFORMATION
  Report Type: Spontaneous
  Country: IN (occurrence: None)
  Receive Date: 20140310
  Receipt Date: 20140310
  Transmission Date: 20141002
  Serious: Yes (Hospitalization)
  Sender: FDA-Public Use
  Company Number: 2014P1001874

PATIENT
  Age: 28 Year
  Sex: Female

DRUGS (1)
  1. AMLODIPINE/ATENOLOL [Suspect]
     Route: 048

REACTIONS (13)
  - Overdose [None]
  - Hypotension [None]
  - Oliguria [None]
  - Blood glucose increased [None]
  - Blood creatinine increased [None]
  - Oxygen saturation decreased [None]
  - Protein urine present [None]
  - Haematuria [None]
  - Renal disorder [None]
  - Bradycardia [None]
  - Polyuria [None]
  - Borderline personality disorder [None]
  - Toxicity to various agents [None]
